FAERS Safety Report 19696603 (Version 12)
Quarter: 2022Q3

REPORT INFORMATION
  Report Type: Spontaneous
  Country: CA (occurrence: CA)
  Receive Date: 20210813
  Receipt Date: 20220924
  Transmission Date: 20221027
  Serious: Yes (Hospitalization, Other)
  Sender: FDA-Public Use
  Company Number: CA-CELLTRION INC.-2021CA010940

PATIENT

DRUGS (7)
  1. INFLECTRA [Suspect]
     Active Substance: INFLIXIMAB-DYYB
     Indication: Crohn^s disease
     Dosage: UNK
     Route: 042
     Dates: start: 20210507, end: 202105
  2. INFLECTRA [Suspect]
     Active Substance: INFLIXIMAB-DYYB
     Dosage: 1 DF UNK DOSE, AND FREQUENCY
     Route: 042
     Dates: start: 20210507, end: 202105
  3. INFLECTRA [Suspect]
     Active Substance: INFLIXIMAB-DYYB
     Dosage: 600 MG AS SOON AS POSSIBLE, THEN AFTER 4 WEEKS, THEN EVERY (Q) 8 WEEKS (DOSE UNKNOWN FOR 05JUL2021)
     Route: 042
     Dates: start: 20210705
  4. INFLECTRA [Suspect]
     Active Substance: INFLIXIMAB-DYYB
     Dosage: 600 MG AS SOON AS POSSIBLE, THEN AFTER 4 WEEKS, THEN EVERY (Q) 8 WEEKS
     Route: 042
     Dates: start: 20210817
  5. INFLECTRA [Suspect]
     Active Substance: INFLIXIMAB-DYYB
     Dosage: 600 MG AS SOON AS POSSIBLE, THEN AFTER 4 WEEKS, THEN EVERY (Q) 8 WEEKS
     Route: 042
     Dates: start: 20211216
  6. INFLECTRA [Suspect]
     Active Substance: INFLIXIMAB-DYYB
     Dosage: 600 MG AS SOON AS POSSIBLE, THEN AFTER 4 WEEKS, THEN EVERY (Q) 8 WEEKS
     Route: 042
     Dates: start: 20220211
  7. INFLECTRA [Suspect]
     Active Substance: INFLIXIMAB-DYYB
     Dosage: 600 MG AS SOON AS POSSIBLE, THEN AFTER 4 WEEKS, THEN EVERY (Q) 8 WEEKS
     Route: 042
     Dates: start: 20220422

REACTIONS (8)
  - Crohn^s disease [Unknown]
  - Gastrointestinal perforation [Unknown]
  - Off label use [Unknown]
  - Off label use [Unknown]
  - Intentional product use issue [Unknown]
  - Inappropriate schedule of product administration [Unknown]
  - Weight increased [Not Recovered/Not Resolved]
  - Arthralgia [Unknown]

NARRATIVE: CASE EVENT DATE: 20210507
